FAERS Safety Report 6707954-9 (Version None)
Quarter: 2010Q2

REPORT INFORMATION
  Report Type: 
  Country: None (occurrence: None)
  Receive Date: 20100503
  Receipt Date: 20100423
  Transmission Date: 20101027
  Serious: Yes (Other)
  Sender: FDA-Public Use
  Company Number: US-PFIZER INC-2010052637

PATIENT
  Sex: Female
  Weight: 52.154 kg

DRUGS (1)
  1. NEURONTIN [Suspect]
     Indication: NERVE INJURY
     Dosage: 300 MG, 4X/DAY
     Route: 048
     Dates: start: 20020101

REACTIONS (8)
  - ARTHRALGIA [None]
  - INJURY [None]
  - NERVE INJURY [None]
  - PAIN [None]
  - ROTATOR CUFF SYNDROME [None]
  - VISION BLURRED [None]
  - VISUAL IMPAIRMENT [None]
  - WEIGHT DECREASED [None]
